FAERS Safety Report 14306129 (Version 5)
Quarter: 2018Q3

REPORT INFORMATION
  Report Type: Spontaneous
  Country: IT (occurrence: IT)
  Receive Date: 20171219
  Receipt Date: 20180705
  Transmission Date: 20181010
  Serious: Yes (Life-Threatening, Other)
  Sender: FDA-Public Use
  Company Number: IT-TEVA-2017-IT-833936

PATIENT
  Age: 71 Year
  Sex: Male

DRUGS (6)
  1. GLIMEPIRIDE ACCORD HEALTHCARE [Concomitant]
     Indication: PRODUCT USED FOR UNKNOWN INDICATION
     Route: 048
  2. ALFUZOSINA AUROBINDO [Concomitant]
     Indication: PRODUCT USED FOR UNKNOWN INDICATION
     Route: 048
  3. DUTASTERIDE CIPLA [Concomitant]
     Indication: PRODUCT USED FOR UNKNOWN INDICATION
     Route: 048
  4. METFORMIN [Suspect]
     Active Substance: METFORMIN HYDROCHLORIDE
     Indication: DIABETES MELLITUS
     Route: 048
  5. EZETIMIBE ASTRON RESEARCH [Concomitant]
     Indication: PRODUCT USED FOR UNKNOWN INDICATION
  6. FEBUXOSTAT. [Concomitant]
     Active Substance: FEBUXOSTAT
     Indication: PRODUCT USED FOR UNKNOWN INDICATION

REACTIONS (5)
  - Toxicity to various agents [Unknown]
  - Lactic acidosis [Recovering/Resolving]
  - Abdominal pain [Recovering/Resolving]
  - Overdose [Unknown]
  - Anuria [Recovering/Resolving]

NARRATIVE: CASE EVENT DATE: 20170305
